FAERS Safety Report 10308068 (Version 2)
Quarter: 2014Q3

REPORT INFORMATION
  Report Type: Report from Study
  Country: US (occurrence: US)
  Receive Date: 20140716
  Receipt Date: 20140814
  Transmission Date: 20150326
  Serious: Yes (Other)
  Sender: FDA-Public Use
  Company Number: PHEH2014US013902

PATIENT
  Sex: Female
  Weight: 58.5 kg

DRUGS (4)
  1. DEPO-PROVERA [Concomitant]
     Active Substance: MEDROXYPROGESTERONE ACETATE
  2. LISINOPRIL. [Concomitant]
     Active Substance: LISINOPRIL
  3. MULTIVITAMIN                       /00097801/ [Concomitant]
     Active Substance: VITAMINS
  4. GILENYA [Suspect]
     Active Substance: FINGOLIMOD HYDROCHLORIDE
     Indication: MULTIPLE SCLEROSIS
     Dosage: 0.5 MG, QD
     Route: 048
     Dates: start: 20130605

REACTIONS (27)
  - Trigeminal neuralgia [Unknown]
  - Ophthalmoplegia [Unknown]
  - Hyperreflexia [Unknown]
  - Osteonecrosis [Unknown]
  - Multiple sclerosis relapse [Unknown]
  - Fatigue [Unknown]
  - Head injury [Unknown]
  - Hypoaesthesia [Unknown]
  - Dysarthria [Unknown]
  - Paraesthesia [Unknown]
  - Disorientation [Unknown]
  - Detrusor sphincter dyssynergia [Unknown]
  - Gait disturbance [Unknown]
  - Gastrooesophageal sphincter insufficiency [Unknown]
  - Weight decreased [Unknown]
  - Contusion [Unknown]
  - Muscle spasticity [Unknown]
  - Apathy [Unknown]
  - Irritable bowel syndrome [Unknown]
  - Fall [Unknown]
  - Central nervous system lesion [Unknown]
  - Demyelination [Unknown]
  - Drug ineffective [Unknown]
  - Meningioma [Unknown]
  - Nuclear magnetic resonance imaging abnormal [Unknown]
  - Cerebellar ataxia [Unknown]
  - Muscular weakness [Unknown]
